FAERS Safety Report 14672680 (Version 1)
Quarter: 2018Q1

REPORT INFORMATION
  Report Type: Spontaneous
  Country: CZ (occurrence: CZ)
  Receive Date: 20180323
  Receipt Date: 20180323
  Transmission Date: 20180509
  Serious: Yes (Hospitalization, Other)
  Sender: FDA-Public Use
  Company Number: CZ-ROCHE-2095014

PATIENT
  Age: 60 Year
  Sex: Female

DRUGS (6)
  1. MABTHERA [Suspect]
     Active Substance: RITUXIMAB
     Indication: RHEUMATOID ARTHRITIS
     Dosage: 1000 MG IN INFUSION, ONE DOSE ON 4 SEPT 2017 AND THE SECOND DOSE ON 18 SEPT 2017?DATE OF LAST DOSE O
     Route: 041
     Dates: start: 20170904
  2. LOZAP [Concomitant]
     Route: 065
  3. CONTROLOC [Concomitant]
     Active Substance: PANTOPRAZOLE SODIUM
     Route: 065
  4. METHOTREXATE. [Concomitant]
     Active Substance: METHOTREXATE
     Indication: RHEUMATOID ARTHRITIS
     Route: 048
  5. BIOFENAC (ACECLOFENAC) [Concomitant]
     Active Substance: ACECLOFENAC
     Indication: PAIN
     Route: 065
  6. ACIDUM FOLICUM [Concomitant]
     Active Substance: FOLIC ACID
     Dosage: 1 TBL ONE DAY AFTER METHOTREXAT
     Route: 065

REACTIONS (2)
  - Leukopenia [Recovered/Resolved]
  - Phaeochromocytoma [Not Recovered/Not Resolved]

NARRATIVE: CASE EVENT DATE: 20171218
